FAERS Safety Report 24564937 (Version 1)
Quarter: 2024Q4

REPORT INFORMATION
  Report Type: Other
  Country: US (occurrence: US)
  Receive Date: 20241030
  Receipt Date: 20241030
  Transmission Date: 20250115
  Serious: Yes (Hospitalization, Other)
  Sender: CAPLIN STERILES LIMITED
  Company Number: US-Caplin Steriles Limited-2164088

PATIENT
  Age: 44 Year
  Sex: Male

DRUGS (5)
  1. TRANEXAMIC ACID [Suspect]
     Active Substance: TRANEXAMIC ACID
     Indication: Haemostasis
  2. FENTANYL [Concomitant]
     Active Substance: FENTANYL
  3. PROPOFOL [Concomitant]
     Active Substance: PROPOFOL
  4. ONDANSETRON [Concomitant]
     Active Substance: ONDANSETRON
  5. MIDAZOLAM [Concomitant]
     Active Substance: MIDAZOLAM

REACTIONS (1)
  - Neurotoxicity [Recovered/Resolved]
